FAERS Safety Report 5766796-1 (Version None)
Quarter: 2008Q2

REPORT INFORMATION
  Report Type: 
  Country: None (occurrence: None)
  Receive Date: 20080612
  Receipt Date: 20080603
  Transmission Date: 20081010
  Serious: Yes (Other)
  Sender: FDA-Public Use
  Company Number: PHNU2008DE02002

PATIENT
  Sex: Female

DRUGS (5)
  1. RASILEZ [Suspect]
     Dosage: 1 DF, QD
     Route: 048
     Dates: start: 20080603, end: 20080601
  2. INSPRA [Concomitant]
  3. METOPROLOL SUCCINATE [Concomitant]
  4. ATACAND HCT [Concomitant]
  5. PLAVIX [Concomitant]

REACTIONS (4)
  - ANGINA PECTORIS [None]
  - CHEST DISCOMFORT [None]
  - DYSPNOEA [None]
  - PALPITATIONS [None]
